FAERS Safety Report 5649803-6 (Version None)
Quarter: 2008Q1

REPORT INFORMATION
  Report Type: 
  Country: None (occurrence: None)
  Receive Date: 20080303
  Receipt Date: 20080222
  Transmission Date: 20080703
  Serious: Yes (Hospitalization, Other)
  Sender: FDA-Public Use
  Company Number: 2008AP000505

PATIENT
  Age: 45 Year
  Sex: Male

DRUGS (9)
  1. FLUPHENAZINE DECANOATE [Suspect]
     Indication: BIPOLAR DISORDER
     Dosage: 25 MG/ML; QOW; IM
     Route: 030
     Dates: start: 20070101
  2. VALPROATE SODIUM [Concomitant]
  3. SIMVASTATIN [Concomitant]
  4. CLONAZEPAM [Concomitant]
  5. TRIHEXYPHENIDYL HCL [Concomitant]
  6. FLUOXETINE [Concomitant]
  7. HYDROCHLORIDE [Concomitant]
  8. LAMOTRIGINE [Concomitant]
  9. OLANZAPINE [Concomitant]

REACTIONS (4)
  - ABNORMAL BEHAVIOUR [None]
  - AGGRESSION [None]
  - TREMOR [None]
  - WITHDRAWAL SYNDROME [None]
